FAERS Safety Report 19575640 (Version 1)
Quarter: 2021Q3

REPORT INFORMATION
  Report Type: Spontaneous
  Country: US (occurrence: US)
  Receive Date: 20210719
  Receipt Date: 20210719
  Transmission Date: 20211014
  Serious: Yes (Other)
  Sender: FDA-Public Use
  Company Number: US-LUPIN PHARMACEUTICALS INC.-2021-12669

PATIENT

DRUGS (25)
  1. BETAMETHASONE. [Suspect]
     Active Substance: BETAMETHASONE
     Indication: MATERNAL THERAPY TO ENHANCE FOETAL LUNG MATURITY
     Dosage: UNK,TWO DOSES FOR OVER 2 DAYS
     Route: 064
  2. FUROSEMIDE. [Suspect]
     Active Substance: FUROSEMIDE
     Indication: ORTHOPNOEA
     Dosage: UNK
     Route: 064
  3. CEFAZOLINE [Suspect]
     Active Substance: CEFAZOLIN SODIUM
     Indication: INFECTION PROPHYLAXIS
     Dosage: 1000 MILLIGRAM
     Route: 064
  4. OMEPRAZOLE. [Suspect]
     Active Substance: OMEPRAZOLE
     Indication: PRODUCT USED FOR UNKNOWN INDICATION
     Dosage: UNK
     Route: 064
  5. METOPROLOL. [Suspect]
     Active Substance: METOPROLOL
     Indication: ORTHOPNOEA
     Dosage: UNK
     Route: 064
  6. FUROSEMIDE. [Suspect]
     Active Substance: FUROSEMIDE
     Indication: OEDEMA PERIPHERAL
  7. ASPIRIN. [Suspect]
     Active Substance: ASPIRIN
     Indication: PRODUCT USED FOR UNKNOWN INDICATION
     Dosage: UNK
     Route: 064
  8. PROPOFOL. [Suspect]
     Active Substance: PROPOFOL
     Indication: ANAESTHESIA
     Dosage: 40 MILLIGRAM,RAPID SEQUENCE ANAESTHESIA INDUCTION
     Route: 064
  9. GABAPENTIN. [Suspect]
     Active Substance: GABAPENTIN
     Indication: PRODUCT USED FOR UNKNOWN INDICATION
     Dosage: UNK
     Route: 064
  10. METOPROLOL. [Suspect]
     Active Substance: METOPROLOL
     Indication: OEDEMA PERIPHERAL
  11. FORMOTEROL [Suspect]
     Active Substance: FORMOTEROL
     Indication: PRODUCT USED FOR UNKNOWN INDICATION
     Dosage: UNK
     Route: 064
  12. LIDOCAINE. [Suspect]
     Active Substance: LIDOCAINE
     Indication: ANAESTHESIA
     Dosage: 100 MILLIGRAM,RAPID SEQUENCE ANAESTHESIA INDUCTION
     Route: 064
  13. ALBUTEROL;IPRATROPIUM [Suspect]
     Active Substance: ALBUTEROL\IPRATROPIUM
     Indication: PRODUCT USED FOR UNKNOWN INDICATION
     Dosage: UNK
     Route: 064
  14. MIDAZOLAM. [Suspect]
     Active Substance: MIDAZOLAM
     Indication: ANXIETY
     Dosage: 0.25 MILLIGRAM,INCREMENTAL DOSES
     Route: 064
  15. ISOFLURANE. [Suspect]
     Active Substance: ISOFLURANE
     Indication: ANAESTHESIA
     Dosage: UNK,1.0 MAC
     Route: 064
  16. BUDESONIDE. [Suspect]
     Active Substance: BUDESONIDE
     Indication: PRODUCT USED FOR UNKNOWN INDICATION
     Dosage: UNK
     Route: 064
  17. FENTANYL. [Suspect]
     Active Substance: FENTANYL
     Dosage: 250 MICROGRAM
     Route: 064
  18. FUROSEMIDE. [Suspect]
     Active Substance: FUROSEMIDE
     Indication: DYSPNOEA EXERTIONAL
  19. ROCURONIUM [Suspect]
     Active Substance: ROCURONIUM BROMIDE
     Indication: ANAESTHESIA
     Dosage: 50 MILLIGRAM,RAPID SEQUENCE ANAESTHESIA INDUCTION
     Route: 064
  20. FENTANYL. [Suspect]
     Active Substance: FENTANYL
     Indication: ANAESTHESIA
     Dosage: 50 MICROGRAM,RAPID SEQUENCE ANAESTHESIA INDUCTION
     Route: 064
  21. AMITRIPTYLINE [Suspect]
     Active Substance: AMITRIPTYLINE
     Indication: PRODUCT USED FOR UNKNOWN INDICATION
     Dosage: UNK
     Route: 064
  22. METOPROLOL. [Suspect]
     Active Substance: METOPROLOL
     Indication: DYSPNOEA EXERTIONAL
  23. NOREPINEPHRINE. [Suspect]
     Active Substance: NOREPINEPHRINE
     Indication: VASCULAR RESISTANCE SYSTEMIC DECREASED
     Dosage: UNK
     Route: 064
  24. MIDAZOLAM. [Suspect]
     Active Substance: MIDAZOLAM
     Dosage: 1.75 MILLIGRAM
     Route: 064
  25. VASOPRESSIN. [Suspect]
     Active Substance: VASOPRESSIN
     Indication: VASCULAR RESISTANCE SYSTEMIC DECREASED
     Dosage: UNK
     Route: 064

REACTIONS (2)
  - Foetal exposure during pregnancy [Unknown]
  - Premature baby [Unknown]
